FAERS Safety Report 18724141 (Version 1)
Quarter: 2021Q1

REPORT INFORMATION
  Report Type: Spontaneous
  Country: US (occurrence: US)
  Receive Date: 20210107
  Receipt Date: 20210107
  Transmission Date: 20210419
  Serious: Yes (Hospitalization)
  Sender: FDA-Public Use
  Company Number: None

PATIENT
  Age: 63 Year
  Sex: Female
  Weight: 64.86 kg

DRUGS (1)
  1. TIMOLOL (TIMOLOL MALEATE 0.25% SOLN,OPH) [Suspect]
     Active Substance: TIMOLOL MALEATE
     Indication: CATARACT
     Dosage: OTHER ROUTE: EYE
     Dates: start: 20200914, end: 20200914

REACTIONS (3)
  - Anaphylactic reaction [None]
  - Hypoxia [None]
  - Dyspnoea [None]

NARRATIVE: CASE EVENT DATE: 20200914
